FAERS Safety Report 5947628-5 (Version None)
Quarter: 2008Q4

REPORT INFORMATION
  Report Type: 
  Country: None (occurrence: None)
  Receive Date: 20081107
  Receipt Date: 20081029
  Transmission Date: 20090506
  Serious: Yes (Other)
  Sender: FDA-Public Use
  Company Number: 08-001737

PATIENT
  Age: 67 Year
  Sex: Male
  Weight: 95.2 kg

DRUGS (10)
  1. TACLONEX [Suspect]
     Indication: PSORIASIS
     Dosage: QD, TOPICAL
     Route: 061
     Dates: start: 20070101
  2. OMEPRAZOLE [Concomitant]
  3. TOPROL-XL [Concomitant]
  4. MOISTUREL (SODIUM LAURETH SULFATE) [Concomitant]
  5. CLEANSER [Concomitant]
  6. LIGHT TREATMENT [Concomitant]
  7. B12 (CYANOCOBALAMIN-TANNIN COMPLEX) [Concomitant]
  8. VITAMIN E /00110501/ (TOCOPHEROL) [Concomitant]
  9. CENTRUM /00554501/ (MINERALS NOS, VITAMINS NOS) [Concomitant]
  10. HYDROCORTISONE [Concomitant]

REACTIONS (5)
  - BLOOD TRIGLYCERIDES INCREASED [None]
  - MEAN CELL HAEMOGLOBIN INCREASED [None]
  - MEAN CELL VOLUME ABNORMAL [None]
  - PLATELET COUNT DECREASED [None]
  - RED BLOOD CELL COUNT DECREASED [None]
